FAERS Safety Report 4510465-2 (Version None)
Quarter: 2004Q4

REPORT INFORMATION
  Report Type: 
  Country: None (occurrence: None)
  Receive Date: 20041124
  Receipt Date: 20041112
  Transmission Date: 20050328
  Serious: Yes (Other)
  Sender: FDA-Public Use
  Company Number: US-GLAXOSMITHKLINE-B0356779A

PATIENT
  Age: 79 Year
  Sex: Female

DRUGS (5)
  1. VINORELBINE [Suspect]
     Dosage: 15MGM2 CYCLIC
     Route: 042
  2. DOXIL [Suspect]
     Dosage: 50MGM2 CYCLIC
     Route: 042
  3. FILGRASTIM [Concomitant]
     Route: 058
  4. HEPARIN [Concomitant]
     Dosage: 5000UNIT UNKNOWN
     Route: 042
  5. DEXAMETHASONE [Concomitant]
     Route: 042

REACTIONS (5)
  - BLOOD BLISTER [None]
  - CELLULITIS [None]
  - FUNGAL SKIN INFECTION [None]
  - PALMAR-PLANTAR ERYTHRODYSAESTHESIA SYNDROME [None]
  - SKIN LESION [None]
